FAERS Safety Report 8715696 (Version 2)
Quarter: 2013Q2

REPORT INFORMATION
  Report Type: Spontaneous
  Country: US (occurrence: US)
  Receive Date: 20120809
  Receipt Date: 20130408
  Transmission Date: 20140414
  Serious: Yes (Hospitalization)
  Sender: FDA-Public Use
  Company Number: US-ASTRAZENECA-2012SE54585

PATIENT
  Age: 57 Year
  Sex: Female

DRUGS (1)
  1. NEXIUM [Suspect]
     Route: 048

REACTIONS (7)
  - Gastrooesophageal reflux disease [Recovered/Resolved]
  - Weight decreased [Unknown]
  - Aphagia [Unknown]
  - Diarrhoea [Unknown]
  - Vomiting [Unknown]
  - Ulcer [Unknown]
  - Drug dose omission [Unknown]
